FAERS Safety Report 20689387 (Version 5)
Quarter: 2022Q2

REPORT INFORMATION
  Report Type: Report from Study
  Country: CL (occurrence: None)
  Receive Date: 20220408
  Receipt Date: 20220512
  Transmission Date: 20220720
  Serious: Yes (Other)
  Sender: FDA-Public Use
  Company Number: CL-Eisai Medical Research-EC-2022-112519

PATIENT
  Age: 58 Year
  Sex: Female
  Weight: 86.3 kg

DRUGS (8)
  1. LENVATINIB [Suspect]
     Active Substance: LENVATINIB
     Indication: Hepatocellular carcinoma
     Route: 048
     Dates: start: 20220317, end: 20220330
  2. PEMBROLIZUMAB [Suspect]
     Active Substance: PEMBROLIZUMAB
     Indication: Hepatocellular carcinoma
     Dosage: 400 MG MK-7684A COFORMATION (VIBOSTOLIMAB (MK-7684) (+) PEMBROLIZUMAB (MK-3475))
     Route: 042
     Dates: start: 20220317, end: 20220317
  3. XYLITOL [Concomitant]
     Active Substance: XYLITOL
     Dates: start: 20220324
  4. SPIRONOLACTONE [Concomitant]
     Active Substance: SPIRONOLACTONE
     Dates: start: 201801
  5. CARVEDILOL [Concomitant]
     Active Substance: CARVEDILOL
     Dates: start: 201801
  6. EMPAGLIFLOZIN [Concomitant]
     Active Substance: EMPAGLIFLOZIN
     Route: 058
     Dates: start: 201801
  7. INSULIN NOS [Concomitant]
     Active Substance: INSULIN NOS
     Route: 058
     Dates: start: 201801
  8. VIBOSTOLIMAB [Suspect]
     Active Substance: VIBOSTOLIMAB

REACTIONS (1)
  - Hepatic encephalopathy [Recovered/Resolved]

NARRATIVE: CASE EVENT DATE: 20220331
